FAERS Safety Report 8679645 (Version 2)
Quarter: 2013Q1

REPORT INFORMATION
  Report Type: Spontaneous
  Country: US (occurrence: US)
  Receive Date: 20120724
  Receipt Date: 20130116
  Transmission Date: 20140127
  Serious: Yes (Hospitalization)
  Sender: FDA-Public Use
  Company Number: US-ELI_LILLY_AND_COMPANY-US201111008945

PATIENT
  Sex: Female

DRUGS (11)
  1. FORTEO [Suspect]
     Indication: OSTEOPOROSIS
     Dosage: 20 UG, QD
     Route: 065
     Dates: start: 201111
  2. FORTEO [Suspect]
     Dosage: 20 UG, QD
     Route: 065
  3. DILANTIN [Concomitant]
     Dosage: UNK
  4. PHENOBARBITAL [Concomitant]
     Dosage: UNK
  5. PREDNISONE [Concomitant]
     Dosage: UNK
  6. CALCIUM [Concomitant]
     Dosage: UNK
  7. THEOPHYLLINE [Concomitant]
     Dosage: UNK
  8. STOOL SOFTENER [Concomitant]
     Dosage: UNK
  9. ATIVAN [Concomitant]
     Dosage: UNK, EACH EVENING
  10. SYNTHROID [Concomitant]
     Dosage: UNK
  11. OXYGEN [Concomitant]
     Dosage: UNK

REACTIONS (7)
  - Dyspnoea [Unknown]
  - Oral herpes [Unknown]
  - Limb injury [Unknown]
  - Pain in extremity [Unknown]
  - Muscle spasms [Unknown]
  - Fall [Recovered/Resolved]
  - Upper limb fracture [Recovered/Resolved]
